FAERS Safety Report 5733906-1 (Version None)
Quarter: 2008Q2

REPORT INFORMATION
  Report Type: 
  Country: None (occurrence: None)
  Receive Date: 20080509
  Receipt Date: 20080505
  Transmission Date: 20081010
  Serious: Yes (Death, Hospitalization, Other)
  Sender: FDA-Public Use
  Company Number: BR-BOEHRINGER INGELHEIM GMBH, GERMANY-2008-BP-07043RO

PATIENT
  Age: 67 Year
  Sex: Female

DRUGS (5)
  1. AZATHIOPRINE [Suspect]
     Indication: PROPHYLAXIS AGAINST TRANSPLANT REJECTION
  2. PREDNISONE TAB [Suspect]
  3. CYCLOSPORINE [Suspect]
  4. CYCLOPHOSPHAMIDE/VINCRISTINE/PREDNISONE [Concomitant]
     Indication: LYMPHOMA
  5. RAPAMYCIN [Concomitant]
     Indication: PROPHYLAXIS AGAINST TRANSPLANT REJECTION

REACTIONS (4)
  - EPSTEIN-BARR VIRUS INFECTION [None]
  - HUMAN HERPESVIRUS 8 INFECTION [None]
  - LYMPHOMA [None]
  - PLEURAL EFFUSION [None]
